FAERS Safety Report 8298861-1 (Version None)
Quarter: 2012Q2

REPORT INFORMATION
  Report Type: 
  Country: None (occurrence: None)
  Receive Date: 20120419
  Receipt Date: 20120417
  Transmission Date: 20120825
  Serious: Yes (Other)
  Sender: FDA-Public Use
  Company Number: SE-PFIZER INC-2008001110

PATIENT
  Sex: Female

DRUGS (5)
  1. LIPITOR [Concomitant]
     Dosage: UNK
  2. LASIX [Concomitant]
     Dosage: 30 MG, UNK
  3. METFORMIN HCL [Concomitant]
     Dosage: UNK
  4. WARFARIN SODIUM [Concomitant]
     Dosage: 2.5 MG, UNK
  5. VARENICLINE TARTRATE [Suspect]
     Indication: SMOKING CESSATION THERAPY
     Dosage: 2 MG, DAILY
     Route: 048
     Dates: start: 20070401, end: 20070901

REACTIONS (3)
  - DIABETES MELLITUS [None]
  - GLYCOSYLATED HAEMOGLOBIN INCREASED [None]
  - CONDITION AGGRAVATED [None]
